FAERS Safety Report 15449978 (Version 1)
Quarter: 2018Q4

REPORT INFORMATION
  Report Type: Spontaneous
  Country: DE (occurrence: DE)
  Receive Date: 20181001
  Receipt Date: 20181001
  Transmission Date: 20190204
  Serious: Yes (Hospitalization, Other)
  Sender: FDA-Public Use
  Company Number: DE-AUROBINDO-AUR-APL-2018-047968

PATIENT
  Age: 54 Year
  Sex: Male
  Weight: 75.2 kg

DRUGS (16)
  1. RAMIPRIL. [Concomitant]
     Active Substance: RAMIPRIL
     Indication: HYPERTENSION
     Dosage: 1-0-1/2
     Route: 048
     Dates: start: 200605
  2. CEFUROXIME FILM-COATED TABLET [Suspect]
     Active Substance: CEFUROXIME
     Indication: BACTERIAL INFECTION
     Dosage: 250 MG, 2X PER DAY
     Route: 048
     Dates: start: 20090403, end: 20090420
  3. NOVAMINSULFON [Concomitant]
     Active Substance: METAMIZOLE
     Indication: PYREXIA
     Dosage: AS PER DE-KRKA-DE2009K1121SPO: 20 GTT, 1X PER DAY ; AS NECESSARY
     Route: 048
     Dates: start: 200902
  4. MOXONIDINE [Concomitant]
     Active Substance: MOXONIDINE
     Indication: HYPERTENSION
     Dosage: 0.4 MG, 2X PER DAY
     Route: 048
     Dates: start: 200605
  5. PROGRAF [Concomitant]
     Active Substance: TACROLIMUS\TACROLIMUS ANHYDROUS
     Indication: RENAL TRANSPLANT
     Dosage: 1.5 MG, 2X PER DAY
     Route: 048
     Dates: start: 200605
  6. DECORTIN [Concomitant]
     Active Substance: PREDNISONE
     Indication: RENAL TRANSPLANT
     Dosage: 5 MG, 1X PER DAY
     Route: 048
     Dates: start: 200605
  7. CIPROFLOXACIN. [Suspect]
     Active Substance: CIPROFLOXACIN
     Indication: BACTERIAL INFECTION
     Dosage: 250 MG, 1X PER DAY
     Route: 048
     Dates: start: 20090225, end: 20090402
  8. FALITHROM [Concomitant]
     Active Substance: PHENPROCOUMON
     Indication: THROMBOSIS
     Dosage: UNK
     Route: 048
     Dates: start: 20090213
  9. RAPAMUNE [Concomitant]
     Active Substance: SIROLIMUS
     Indication: RENAL TRANSPLANT
     Dosage: 1 MG, 1X PER DAY
     Route: 048
     Dates: start: 200605
  10. TORASEMIDE [Concomitant]
     Active Substance: TORSEMIDE
     Indication: HYPERTENSION
     Dosage: 5 MG, 1X PER DAY
     Route: 048
     Dates: start: 200605
  11. BISOPROLOL [Concomitant]
     Active Substance: BISOPROLOL
     Indication: HYPERTENSION
     Dosage: 5 MG, 2X PER DAY
     Route: 048
     Dates: start: 200605
  12. CARMEN                             /00740901/ [Concomitant]
     Active Substance: CARBOPLATIN
     Indication: HYPERTENSION
     Dosage: 10 MG, 2X PER DAY
     Route: 048
     Dates: start: 200605
  13. GODAMED [Concomitant]
     Active Substance: ASPIRIN
     Indication: ARTERIOSCLEROSIS CORONARY ARTERY
     Dosage: 100 MILLIGRAM, ONCE A DAY
     Route: 048
     Dates: start: 200806
  14. LOCOL                              /01224502/ [Concomitant]
     Active Substance: FLUVASTATIN SODIUM
     Indication: HYPERLIPIDAEMIA
     Dosage: 80 MG, 1X PER DAY
     Route: 048
     Dates: start: 200605
  15. PANTOZOL [Concomitant]
     Active Substance: PANTOPRAZOLE SODIUM
     Indication: PROPHYLAXIS AGAINST GASTROINTESTINAL ULCER
     Dosage: 40 MG, 1X PER DAY
     Route: 048
     Dates: start: 200605
  16. TAMSULOSIN [Concomitant]
     Active Substance: TAMSULOSIN
     Indication: BENIGN PROSTATIC HYPERPLASIA
     Dosage: 0.4 MG, 1X PER DAY
     Route: 048

REACTIONS (1)
  - Clostridium difficile colitis [Recovering/Resolving]

NARRATIVE: CASE EVENT DATE: 200903
